FAERS Safety Report 7995704-8 (Version None)
Quarter: 2011Q4

REPORT INFORMATION
  Report Type: 
  Country: None (occurrence: None)
  Receive Date: 20111220
  Receipt Date: 20111215
  Transmission Date: 20120403
  Serious: Yes (Other)
  Sender: FDA-Public Use
  Company Number: US-ROCHE-793016

PATIENT
  Sex: Female
  Weight: 38.59 kg

DRUGS (5)
  1. ACCUTANE [Suspect]
     Indication: ACNE
     Route: 065
     Dates: start: 19950101, end: 19951231
  2. ZOLOFT [Concomitant]
     Indication: DEPRESSION
  3. DEXEDRINE [Concomitant]
  4. OVCON-35 [Concomitant]
     Indication: ORAL CONTRACEPTION
  5. ACCUTANE [Suspect]
     Route: 065
     Dates: start: 20000101, end: 20001231

REACTIONS (9)
  - INFLAMMATORY BOWEL DISEASE [None]
  - NEPHROLITHIASIS [None]
  - INTESTINAL HAEMORRHAGE [None]
  - IRRITABLE BOWEL SYNDROME [None]
  - CROHN'S DISEASE [None]
  - INTESTINAL OBSTRUCTION [None]
  - OSTEOPOROSIS [None]
  - DEPRESSION [None]
  - COLITIS ULCERATIVE [None]
